FAERS Safety Report 5189759-6 (Version None)
Quarter: 2006Q4

REPORT INFORMATION
  Report Type: 
  Country: None (occurrence: None)
  Receive Date: 20061215
  Receipt Date: 20061201
  Transmission Date: 20070319
  Serious: Yes (Other)
  Sender: FDA-Public Use
  Company Number: 233398

PATIENT
  Age: 41 Year
  Sex: Male
  Weight: 84 kg

DRUGS (6)
  1. AVASTIN [Suspect]
     Indication: COLON CANCER METASTATIC
     Dosage: 5 MG/KG, Q2W
     Dates: start: 20060711
  2. LEUCOVORIN CALCIUM [Suspect]
     Indication: COLON CANCER METASTATIC
     Dosage: 500 MG, 1/WEEK
     Dates: start: 20060613
  3. OXALIPLATIN [Suspect]
     Indication: COLON CANCER METASTATIC
     Dosage: 100 MG, 1/WEEK
     Dates: start: 20060613
  4. FLUOROURACIL [Concomitant]
  5. PREDNISOLONE [Concomitant]
  6. ANTIEMETIC             (ANTIEMETIC NOS) [Concomitant]

REACTIONS (2)
  - BACK PAIN [None]
  - HAEMOLYTIC ANAEMIA [None]
